FAERS Safety Report 8613274-8 (Version None)
Quarter: 2012Q3

REPORT INFORMATION
  Report Type: 
  Country: None (occurrence: None)
  Receive Date: 20120822
  Receipt Date: 20120803
  Transmission Date: 20120928
  Serious: Yes (Hospitalization)
  Sender: FDA-Public Use
  Company Number: JP-009507513-1208JPN003796

PATIENT

DRUGS (6)
  1. MINIPRESS [Concomitant]
     Indication: HYPERTENSION
     Route: 048
     Dates: end: 20120714
  2. TELAVIC [Suspect]
     Indication: HEPATITIS C
     Route: 048
     Dates: start: 20120705, end: 20120714
  3. ADALAT [Concomitant]
     Indication: HYPERTENSION
     Route: 048
  4. PEG-INTRON [Suspect]
     Indication: HEPATITIS C
     Dosage: 80MCG/KG/WEEK
     Route: 058
     Dates: start: 20120705, end: 20120714
  5. REBETOL [Suspect]
     Indication: HEPATITIS C
     Route: 048
     Dates: start: 20120705, end: 20120714
  6. CANDESARTAN CILEXETIL AND HYDROCHLOROTHIAZIDE [Concomitant]
     Indication: HYPERTENSION
     Dosage: 8MG/6.25MG/DAY
     Route: 048
     Dates: end: 20120714

REACTIONS (2)
  - BLOOD CREATININE INCREASED [None]
  - CONVULSION [None]
